FAERS Safety Report 5336985-9 (Version None)
Quarter: 2007Q2

REPORT INFORMATION
  Report Type: 
  Country: None (occurrence: None)
  Receive Date: 20070529
  Receipt Date: 20070515
  Transmission Date: 20071010
  Serious: Yes (Other)
  Sender: FDA-Public Use
  Company Number: US-ROCHE-497763

PATIENT
  Age: 25 Year
  Sex: Male

DRUGS (2)
  1. ACCUTANE [Suspect]
     Indication: DRUG USE FOR UNKNOWN INDICATION
     Dosage: START AND STOP DATES NOT PROVIDED(TOOK 2 COURSES)
     Route: 065
  2. ACCUTANE [Suspect]
     Dosage: START AND STOP DATES NOT PROVIDED(TOOK 2 COURSES)
     Route: 065

REACTIONS (4)
  - AGITATION [None]
  - ANXIETY [None]
  - DEPRESSION [None]
  - PARANOIA [None]
